FAERS Safety Report 23899522 (Version 1)
Quarter: 2024Q2

REPORT INFORMATION
  Report Type: Spontaneous
  Country: US (occurrence: None)
  Receive Date: 20240526
  Receipt Date: 20240526
  Transmission Date: 20240715
  Serious: No
  Sender: FDA-Public Use
  Company Number: US-ROCHE-3382220

PATIENT
  Sex: Male

DRUGS (4)
  1. ACTEMRA [Suspect]
     Active Substance: TOCILIZUMAB
     Indication: Polymyalgia rheumatica
     Dosage: STRENGTH: ACTEMRA 162MG/0.9ML?LAST DOSE WAS ON 30/JUN/2023
     Route: 058
  2. ACTEMRA [Suspect]
     Active Substance: TOCILIZUMAB
  3. ACTEMRA [Suspect]
     Active Substance: TOCILIZUMAB
     Indication: Giant cell arteritis
  4. ACTEMRA [Suspect]
     Active Substance: TOCILIZUMAB

REACTIONS (6)
  - Product storage error [Unknown]
  - Wrong technique in product usage process [Unknown]
  - Device issue [Unknown]
  - Needle issue [Unknown]
  - Product administration error [Unknown]
  - No adverse event [Unknown]

NARRATIVE: CASE EVENT DATE: 20230630
